FAERS Safety Report 25918534 (Version 1)
Quarter: 2025Q4

REPORT INFORMATION
  Report Type: Spontaneous
  Country: US (occurrence: US)
  Receive Date: 20251014
  Receipt Date: 20251014
  Transmission Date: 20260117
  Serious: No
  Sender: MSN LABORATORIES PRIVATE LIMITED
  Company Number: US-MSNLABS-2025MSNSPO02896

PATIENT

DRUGS (2)
  1. CAPECITABINE [Suspect]
     Active Substance: CAPECITABINE
     Indication: Product used for unknown indication
     Route: 065
     Dates: start: 20251001
  2. CAPECITABINE [Suspect]
     Active Substance: CAPECITABINE
     Route: 065

REACTIONS (2)
  - Product dose omission issue [Unknown]
  - Product use complaint [Unknown]

NARRATIVE: CASE EVENT DATE: 20251001
